FAERS Safety Report 6959894-8 (Version None)
Quarter: 2010Q3

REPORT INFORMATION
  Report Type: 
  Country: None (occurrence: None)
  Receive Date: 20100901
  Receipt Date: 20100824
  Transmission Date: 20110219
  Serious: No
  Sender: FDA-Public Use
  Company Number: 2010BI006884

PATIENT
  Age: 68 Year
  Sex: Female

DRUGS (1)
  1. TYSABRI [Suspect]
     Indication: MULTIPLE SCLEROSIS
     Route: 042
     Dates: start: 20090714

REACTIONS (17)
  - ADVERSE DRUG REACTION [None]
  - ARTHRITIS [None]
  - FALL [None]
  - HEAD INJURY [None]
  - INSOMNIA [None]
  - JOINT INJURY [None]
  - MALAISE [None]
  - MEMORY IMPAIRMENT [None]
  - MENTAL DISORDER [None]
  - MULTIPLE SCLEROSIS RELAPSE [None]
  - NASOPHARYNGITIS [None]
  - OEDEMA PERIPHERAL [None]
  - OXYGEN SATURATION DECREASED [None]
  - PAIN [None]
  - SINUSITIS [None]
  - STERNAL FRACTURE [None]
  - STRESS [None]
